FAERS Safety Report 11632920 (Version 3)
Quarter: 2015Q4

REPORT INFORMATION
  Report Type: Spontaneous
  Country: JP (occurrence: JP)
  Receive Date: 20151015
  Receipt Date: 20151029
  Transmission Date: 20160304
  Serious: Yes (Hospitalization)
  Sender: FDA-Public Use
  Company Number: PHJP2015JP017574

PATIENT
  Age: 68 Year
  Sex: Male
  Weight: 54 kg

DRUGS (3)
  1. SANDOSTATINA LAR IM INJECTION [Suspect]
     Active Substance: OCTREOTIDE ACETATE
     Indication: ACROMEGALY
     Dosage: 40 MG, QMO
     Route: 030
     Dates: start: 20141106
  2. CABASER [Concomitant]
     Active Substance: CABERGOLINE
     Indication: ACROMEGALY
     Dosage: 1 MG, QD
     Route: 048
     Dates: start: 20150319
  3. BLOPRESS [Concomitant]
     Active Substance: CANDESARTAN CILEXETIL
     Indication: HYPERTENSION
     Dosage: 4 MG, QD
     Route: 048
     Dates: start: 20150319

REACTIONS (4)
  - Injection site pain [Unknown]
  - Injection site swelling [Recovering/Resolving]
  - Arterial haemorrhage [Recovering/Resolving]
  - Injection site haematoma [Unknown]

NARRATIVE: CASE EVENT DATE: 20151008
